FAERS Safety Report 5294542-7 (Version None)
Quarter: 2007Q2

REPORT INFORMATION
  Report Type: 
  Country: None (occurrence: None)
  Receive Date: 20070412
  Receipt Date: 20070405
  Transmission Date: 20071010
  Serious: Yes (Hospitalization)
  Sender: FDA-Public Use
  Company Number: JP-JNJFOC-20070305622

PATIENT
  Sex: Male

DRUGS (7)
  1. RISPERDAL [Suspect]
     Indication: DRUG USE FOR UNKNOWN INDICATION
  2. HALCION [Concomitant]
     Route: 048
  3. AKINETON [Concomitant]
     Route: 048
  4. LEVOMEPROMAZINE MALEATE [Concomitant]
     Route: 048
  5. CHLORPROMAZINE HYDROCHLORIDE [Concomitant]
     Route: 048
  6. PROMETHAZINE HCL [Concomitant]
     Route: 048
  7. NITRAZEPAM [Concomitant]
     Route: 048

REACTIONS (1)
  - MULTIPLE DRUG OVERDOSE [None]
